FAERS Safety Report 19495037 (Version 1)
Quarter: 2021Q3

REPORT INFORMATION
  Report Type: Spontaneous
  Country: US (occurrence: US)
  Receive Date: 20210706
  Receipt Date: 20210706
  Transmission Date: 20211014
  Serious: No
  Sender: FDA-Public Use
  Company Number: US-ORGANON-O2106USA002373

PATIENT
  Age: 14 Year
  Sex: Female

DRUGS (1)
  1. NEXPLANON [Suspect]
     Active Substance: ETONOGESTREL
     Dosage: 1 ROD,68 MILLIGRAM,ONCE

REACTIONS (4)
  - Product administered to patient of inappropriate age [Unknown]
  - Medical device site discomfort [Unknown]
  - Implant site bruising [Unknown]
  - Wrong technique in device usage process [Unknown]
